FAERS Safety Report 10149499 (Version 1)
Quarter: 2014Q2

REPORT INFORMATION
  Report Type: Spontaneous
  Country: US (occurrence: None)
  Receive Date: 20140501
  Receipt Date: 20140501
  Transmission Date: 20141212
  Serious: Yes (Life-Threatening, Hospitalization, Other)
  Sender: FDA-Public Use
  Company Number: None

PATIENT
  Age: 75 Year
  Sex: Female
  Weight: 77.11 kg

DRUGS (20)
  1. EVISTA [Suspect]
     Indication: OSTEOPOROSIS PROPHYLAXIS
     Dosage: 1 TAB
     Route: 048
     Dates: start: 20100618
  2. PAXIL [Concomitant]
  3. OXYBUTININ [Concomitant]
  4. NABUMETONE [Concomitant]
  5. GLIMEPIRIDE [Concomitant]
  6. LOVASTATIN [Concomitant]
  7. LISINOPRIL [Concomitant]
  8. MONTELUKAST [Concomitant]
  9. CPAP [Concomitant]
  10. ASPIRIN [Concomitant]
  11. CALCIUM [Concomitant]
  12. MAGNESIUM [Concomitant]
  13. COQ10 [Concomitant]
  14. D3 [Concomitant]
  15. B6 [Concomitant]
  16. B12 [Concomitant]
  17. GLUCOSAMINE [Concomitant]
  18. FISH OIL [Concomitant]
  19. POTASSIUM [Concomitant]
  20. CINNAMON [Concomitant]

REACTIONS (2)
  - Pain [None]
  - Pulmonary thrombosis [None]
